FAERS Safety Report 15259059 (Version 1)
Quarter: 2018Q3

REPORT INFORMATION
  Report Type: Spontaneous
  Country: US (occurrence: US)
  Receive Date: 20180718
  Receipt Date: 20180718
  Transmission Date: 20181010
  Serious: Yes (Disabling)
  Sender: FDA-Public Use
  Company Number: None

PATIENT
  Age: 64 Year
  Sex: Female
  Weight: 57.15 kg

DRUGS (3)
  1. MINOCYCLINE HYDROCHLORIDE (MINOCYCLINE 100 DAN 5695) [Suspect]
     Active Substance: MINOCYCLINE HYDROCHLORIDE
     Indication: SKIN NEOPLASM EXCISION
     Dosage: ?          QUANTITY:1 CAPSULE(S);?
     Route: 048
     Dates: start: 20180713, end: 20180717
  2. VITAMIN D3 [Concomitant]
     Active Substance: CHOLECALCIFEROL
  3. CENTRUM SILVER MULTI?VITAMIN MINERAL [Concomitant]

REACTIONS (3)
  - Pruritus [None]
  - Dizziness [None]
  - Hypoaesthesia [None]

NARRATIVE: CASE EVENT DATE: 20180717
